FAERS Safety Report 19110939 (Version 3)
Quarter: 2021Q2

REPORT INFORMATION
  Report Type: Spontaneous
  Country: FR (occurrence: FR)
  Receive Date: 20210408
  Receipt Date: 20210512
  Transmission Date: 20210717
  Serious: Yes (Hospitalization, Disabling)
  Sender: FDA-Public Use
  Company Number: FR-BAYER-2021-118104

PATIENT
  Age: 67 Year
  Sex: Male
  Weight: 96 kg

DRUGS (9)
  1. APROTININ [Suspect]
     Active Substance: APROTININ
     Indication: CORONARY ARTERY BYPASS
     Dosage: LOADING DOSE 1 MILLION UI, PUMP PRIMING DOSE 1 MILLION UI AND CONTINUOUS INFUSION OF APROTININ 34583
     Route: 042
     Dates: start: 20201224, end: 20201224
  2. PROTAMINE [Suspect]
     Active Substance: PROTAMINE
  3. PROPOFOL. [Concomitant]
     Active Substance: PROPOFOL
     Indication: PRODUCT USED FOR UNKNOWN INDICATION
     Route: 065
  4. SUFENTANIL [Concomitant]
     Active Substance: SUFENTANIL
     Indication: PRODUCT USED FOR UNKNOWN INDICATION
     Route: 065
  5. SUFENTANIL [Concomitant]
     Active Substance: SUFENTANIL
     Indication: ANAESTHESIA
  6. HEPARIN [Concomitant]
     Active Substance: HEPARIN SODIUM
     Indication: PRODUCT USED FOR UNKNOWN INDICATION
     Route: 065
  7. PROPOFOL. [Concomitant]
     Active Substance: PROPOFOL
     Indication: ANAESTHESIA
  8. KETAMIN [KETAMINE HYDROCHLORIDE] [Concomitant]
     Indication: PRODUCT USED FOR UNKNOWN INDICATION
     Route: 065
  9. KETAMIN [KETAMINE HYDROCHLORIDE] [Concomitant]
     Indication: ANALGESIC THERAPY

REACTIONS (1)
  - Ischaemic stroke [Recovered/Resolved with Sequelae]

NARRATIVE: CASE EVENT DATE: 20201226
